FAERS Safety Report 11880848 (Version 1)
Quarter: 2015Q4

REPORT INFORMATION
  Report Type: Report from Study
  Country: US (occurrence: US)
  Receive Date: 20151230
  Receipt Date: 20151230
  Transmission Date: 20160305
  Serious: Yes (Hospitalization)
  Sender: FDA-Public Use
  Company Number: US-ACTELION-A-US2015-128139

PATIENT
  Age: 65 Year
  Sex: Male

DRUGS (2)
  1. REVATIO [Concomitant]
     Active Substance: SILDENAFIL CITRATE
  2. MACITENTAN [Suspect]
     Active Substance: MACITENTAN
     Indication: PULMONARY ARTERIAL HYPERTENSION
     Dosage: 10 MG, QD
     Route: 048

REACTIONS (9)
  - Cardiac operation [Unknown]
  - Nasopharyngitis [Unknown]
  - Dyspnoea [Unknown]
  - Chest pain [Unknown]
  - Atrial fibrillation [Unknown]
  - Influenza [Unknown]
  - Arrhythmia [Unknown]
  - Dizziness [Unknown]
  - Oedema [Unknown]

NARRATIVE: CASE EVENT DATE: 201512
